FAERS Safety Report 7473489-1 (Version None)
Quarter: 2011Q1

REPORT INFORMATION
  Report Type: 
  Country: None (occurrence: None)
  Receive Date: 20110302
  Receipt Date: 20101103
  Transmission Date: 20110831
  Serious: Yes (Death, Other)
  Sender: FDA-Public Use
  Company Number: 163-21880-10061847

PATIENT
  Age: 81 Year
  Sex: Female

DRUGS (13)
  1. NITRO-DUR [Concomitant]
  2. ARANESP [Concomitant]
  3. NEXIUM [Concomitant]
  4. SIMVASTATIN [Concomitant]
  5. TRAMADOL HCL [Concomitant]
  6. ASPIRIN [Concomitant]
  7. ATIVAN [Concomitant]
  8. VITAMIN B12 [Concomitant]
  9. PROZAC [Concomitant]
  10. MORPHINE [Concomitant]
  11. METOPROLOL TARTRATE [Concomitant]
  12. REVLIMID [Suspect]
     Indication: MULTIPLE MYELOMA
     Dosage: 5 MG, 1 IN 1 D, PO
     Route: 048
     Dates: start: 20080101
  13. DEXAMETHASONE [Concomitant]

REACTIONS (3)
  - MULTIPLE MYELOMA [None]
  - MYOCARDIAL INFARCTION [None]
  - CARDIAC DISORDER [None]
